FAERS Safety Report 8968760 (Version 1)
Quarter: 2012Q4

REPORT INFORMATION
  Report Type: 
  Country: US (occurrence: US)
  Receive Date: 20121218
  Receipt Date: 20121218
  Transmission Date: 20130627
  Serious: Yes (Other)
  Sender: FDA-Public Use
  Company Number: US-BRISTOL-MYERS SQUIBB COMPANY-16730699

PATIENT
  Age: 53 Year
  Sex: Female

DRUGS (6)
  1. ABILIFY [Suspect]
     Dosage: Dose reduced to 7.5mg
     Dates: start: 2005
  2. PAXIL [Suspect]
  3. LAMOTRIGINE [Concomitant]
  4. LIPITOR [Concomitant]
  5. LEVOTHYROXINE [Concomitant]
  6. METFORMIN [Concomitant]

REACTIONS (8)
  - Diabetes mellitus [Unknown]
  - Tic [Not Recovered/Not Resolved]
  - Dyskinesia [Not Recovered/Not Resolved]
  - Pain [Unknown]
  - Hypoaesthesia [Unknown]
  - Mood altered [Unknown]
  - Hyperhidrosis [Unknown]
  - Weight increased [Unknown]
